FAERS Safety Report 10381512 (Version 1)
Quarter: 2014Q1

REPORT INFORMATION
  Report Type: Spontaneous
  Country: US (occurrence: None)
  Receive Date: 20140306
  Receipt Date: 20140306
  Transmission Date: 20141002
  Serious: Yes (Hospitalization)
  Sender: FDA-Public Use
  Company Number: 163-21880-13023397

PATIENT
  Age: 63 Year
  Sex: Female

DRUGS (3)
  1. REVLIMID (LENALIDOMIDE) (10 MILLIGRAM, CAPSULES) [Suspect]
     Indication: PLASMA CELL MYELOMA
     Route: 048
     Dates: start: 20121215, end: 20130112
  2. MELPHALAN [Concomitant]
  3. PREDNISONE [Concomitant]

REACTIONS (2)
  - Plasma cell myeloma [None]
  - Drug ineffective [None]
